FAERS Safety Report 9450819 (Version 2)
Quarter: 2013Q4

REPORT INFORMATION
  Report Type: Spontaneous
  Country: JP (occurrence: JP)
  Receive Date: 20130809
  Receipt Date: 20131002
  Transmission Date: 20140711
  Serious: Yes (Other)
  Sender: FDA-Public Use
  Company Number: JP-OTSUKA-JP-2013-12887

PATIENT
  Age: 70 Year
  Sex: Female

DRUGS (10)
  1. SAMSCA [Suspect]
     Indication: OEDEMA
     Dosage: 0.125 DF DOSAGE FORM, DAILY DOSE
     Route: 048
  2. SAMSCA [Suspect]
     Dosage: 0.25 DF DOSAGE FORM, DAILY DOSE
     Route: 051
  3. ACE INHIBITORS [Suspect]
     Route: 065
  4. BIOFERMIN [Concomitant]
     Route: 048
  5. PREDONINE [Concomitant]
     Route: 065
  6. TAKEPRON [Concomitant]
     Route: 065
  7. POTASSIUM GLUCONATE [Concomitant]
     Route: 048
  8. HEPARIN [Concomitant]
     Route: 065
  9. NESP [Concomitant]
     Route: 042
  10. LASIX [Concomitant]
     Dosage: 80 MG MILLIGRAM(S), DAILY DOSE
     Route: 065

REACTIONS (1)
  - Depressed level of consciousness [Unknown]
